FAERS Safety Report 14703151 (Version 1)
Quarter: 2018Q2

REPORT INFORMATION
  Report Type: Report from Study
  Country: US (occurrence: US)
  Receive Date: 20180402
  Receipt Date: 20180402
  Transmission Date: 20180711
  Serious: Yes (Death, Other)
  Sender: FDA-Public Use
  Company Number: US-ROCHE-2096468

PATIENT
  Age: 58 Year

DRUGS (1)
  1. BEVACIZUMAB. [Suspect]
     Active Substance: BEVACIZUMAB
     Indication: PROSTATE CANCER
     Dosage: 15 MG/KG OVER 30 MINUTES ON DAY 1 OF EACH 21-DAY CYCLE  AS PER PROTOCOL
     Route: 042

REACTIONS (2)
  - Death [Fatal]
  - Osteonecrosis [Unknown]

NARRATIVE: CASE EVENT DATE: 20081123
